FAERS Safety Report 5111441-1 (Version None)
Quarter: 2006Q3

REPORT INFORMATION
  Report Type: 
  Country: None (occurrence: None)
  Receive Date: 20060922
  Receipt Date: 20051031
  Transmission Date: 20061208
  Serious: No
  Sender: FDA-Public Use
  Company Number: US-GLAXOSMITHKLINE-A0580262A

PATIENT
  Age: 41 Year
  Sex: Male

DRUGS (1)
  1. ABREVA [Suspect]
     Dates: end: 20051029

REACTIONS (1)
  - SCAR [None]
